FAERS Safety Report 7024822-6 (Version None)
Quarter: 2010Q4

REPORT INFORMATION
  Report Type: 
  Country: None (occurrence: None)
  Receive Date: 20101001
  Receipt Date: 20100922
  Transmission Date: 20110411
  Serious: Yes (Other)
  Sender: FDA-Public Use
  Company Number: US-PFIZER INC-2010120668

PATIENT
  Sex: Female
  Weight: 54.422 kg

DRUGS (7)
  1. LIPITOR [Suspect]
     Indication: BLOOD CHOLESTEROL INCREASED
     Dosage: 15 MG, 1 1/2 TAB OF 10MG TAB DAILY
     Route: 048
     Dates: start: 19970101, end: 20100101
  2. METOPROLOL [Concomitant]
     Indication: CARDIAC DISORDER
     Dosage: 75 MG, 2X/DAY
     Route: 048
  3. AMLODIPINE [Concomitant]
     Indication: CARDIAC DISORDER
     Dosage: 5 MG, 1X/DAY
     Route: 048
  4. DIGOXIN [Concomitant]
     Indication: CARDIAC DISORDER
     Dosage: 0.125 MG, 1X/DAY
     Route: 048
  5. WARFARIN SODIUM [Concomitant]
     Indication: CARDIAC DISORDER
     Dosage: UNK, DAILY
     Route: 048
  6. VENTOLIN [Concomitant]
     Indication: ASTHMA
     Dosage: 2 PUFFS DAILY
     Route: 055
  7. FLOVENT [Concomitant]
     Indication: ASTHMA
     Dosage: 2 PUFFS DAILY
     Route: 055

REACTIONS (1)
  - HYPOTHYROIDISM [None]
